FAERS Safety Report 15374507 (Version 2)
Quarter: 2018Q3

REPORT INFORMATION
  Report Type: Spontaneous
  Country: PL (occurrence: PL)
  Receive Date: 20180912
  Receipt Date: 20180912
  Transmission Date: 20181010
  Serious: Yes (Other)
  Sender: FDA-Public Use
  Company Number: PL-LUPIN PHARMACEUTICALS INC.-2018-06327

PATIENT
  Age: 27 Year
  Sex: Female

DRUGS (2)
  1. TRAMADOL. [Suspect]
     Active Substance: TRAMADOL
     Indication: PRODUCT USED FOR UNKNOWN INDICATION
     Dosage: 750 MG, QD
     Route: 065
  2. PREGABALIN. [Suspect]
     Active Substance: PREGABALIN
     Indication: PRODUCT USED FOR UNKNOWN INDICATION
     Dosage: 3000 MG, QD (FOR FIVE MONTHS)
     Route: 065

REACTIONS (12)
  - Initial insomnia [Unknown]
  - Affective disorder [Unknown]
  - Depression [Unknown]
  - Anxiety [Unknown]
  - Abdominal pain [Unknown]
  - Sleep disorder [Unknown]
  - Exposure during pregnancy [Unknown]
  - Tremor [Unknown]
  - Diarrhoea [Unknown]
  - Drug dependence [Unknown]
  - Overdose [Unknown]
  - Drug withdrawal syndrome [Unknown]
